FAERS Safety Report 12533055 (Version 1)
Quarter: 2016Q3

REPORT INFORMATION
  Report Type: Spontaneous
  Country: US (occurrence: US)
  Receive Date: 20160706
  Receipt Date: 20160706
  Transmission Date: 20161109
  Serious: No
  Sender: FDA-Public Use
  Company Number: US-PURDUE-USA-2015-0126686

PATIENT
  Age: 50 Year
  Sex: Female

DRUGS (2)
  1. HYDROCORTISONE. [Concomitant]
     Active Substance: HYDROCORTISONE
     Indication: PRURITUS
     Dosage: SMALL AMOUNT AS NEEDED
     Route: 061
     Dates: start: 20150930
  2. BUTRANS [Suspect]
     Active Substance: BUPRENORPHINE
     Indication: PAIN
     Dosage: 20 MCG/HR, WEEKLY
     Route: 062
     Dates: start: 201509

REACTIONS (6)
  - Application site dryness [Unknown]
  - Application site exfoliation [Unknown]
  - Application site erythema [Not Recovered/Not Resolved]
  - Application site burn [Unknown]
  - Application site pruritus [Not Recovered/Not Resolved]
  - Application site discharge [Unknown]

NARRATIVE: CASE EVENT DATE: 20150930
